FAERS Safety Report 15651801 (Version 1)
Quarter: 2018Q4

REPORT INFORMATION
  Report Type: Spontaneous
  Country: BY (occurrence: BY)
  Receive Date: 20181123
  Receipt Date: 20181123
  Transmission Date: 20190205
  Serious: Yes (Life-Threatening)
  Sender: FDA-Public Use
  Company Number: BY-TEVA-2018-BY-850961

PATIENT
  Age: 48 Year
  Sex: Male

DRUGS (10)
  1. PLAVIKS [Concomitant]
     Dosage: 600 MILLIGRAM DAILY;
     Route: 048
     Dates: start: 20171025, end: 20171025
  2. KLEXAN [Concomitant]
     Dosage: 1.6 ML DAILY;
     Route: 058
     Dates: end: 20171024
  3. LOPIREL [Suspect]
     Active Substance: CLOPIDOGREL BISULFATE
     Dosage: 600 MILLIGRAM DAILY;
     Route: 048
     Dates: start: 20171024, end: 20171024
  4. OMEZ [Concomitant]
     Active Substance: OMEPRAZOLE
     Dosage: 40 MILLIGRAM DAILY;
     Route: 048
     Dates: end: 20171024
  5. RAMILONG [Concomitant]
     Dosage: 2.5 MILLIGRAM DAILY;
     Route: 048
     Dates: end: 20171025
  6. METOPROLOL. [Concomitant]
     Active Substance: METOPROLOL
     Dosage: 37.5 MILLIGRAM DAILY;
     Route: 048
     Dates: end: 20171024
  7. ISOMIK 0.1% [Concomitant]
     Indication: ACUTE MYOCARDIAL INFARCTION
     Dosage: 600 MICROGRAM DAILY;
     Route: 042
     Dates: start: 20171024, end: 20171024
  8. ATORVASTATIN [Concomitant]
     Active Substance: ATORVASTATIN
     Dosage: 40 MILLIGRAM DAILY;
     Route: 048
     Dates: end: 20171024
  9. HEPARIN [Concomitant]
     Active Substance: HEPARIN SODIUM
     Dosage: 9000 IU (INTERNATIONAL UNIT) DAILY;
     Route: 042
     Dates: start: 20171024, end: 20171024
  10. PLAVIKS [Concomitant]
     Dosage: 75 MILLIGRAM DAILY;
     Route: 048
     Dates: start: 20171026, end: 20171026

REACTIONS (3)
  - Platelet aggregation abnormal [Recovered/Resolved]
  - Drug ineffective [Recovered/Resolved]
  - Product substitution [Recovered/Resolved]

NARRATIVE: CASE EVENT DATE: 20171024
